FAERS Safety Report 12602736 (Version 2)
Quarter: 2017Q1

REPORT INFORMATION
  Report Type: Report from Study
  Country: US (occurrence: US)
  Receive Date: 20160728
  Receipt Date: 20170104
  Transmission Date: 20170428
  Serious: Yes (Hospitalization)
  Sender: FDA-Public Use
  Company Number: US-BIOGEN-2016BI00269851

PATIENT
  Age: 46 Year
  Sex: Male

DRUGS (3)
  1. TYSABRI [Suspect]
     Active Substance: NATALIZUMAB
     Route: 042
     Dates: start: 20150910
  2. TYSABRI [Suspect]
     Active Substance: NATALIZUMAB
     Indication: MULTIPLE SCLEROSIS
     Route: 042
     Dates: start: 2005
  3. TYSABRI [Suspect]
     Active Substance: NATALIZUMAB
     Route: 042
     Dates: start: 20080530, end: 20130502

REACTIONS (8)
  - Bacterial infection [Recovered/Resolved]
  - Fall [Recovered/Resolved]
  - Seizure [Recovered/Resolved]
  - Head injury [Not Recovered/Not Resolved]
  - Renal failure [Recovered/Resolved]
  - Sepsis [Recovered/Resolved]
  - Loss of consciousness [Not Recovered/Not Resolved]
  - Thrombosis [Recovered/Resolved]

NARRATIVE: CASE EVENT DATE: 20160714
